FAERS Safety Report 8890779 (Version 5)
Quarter: 2013Q4

REPORT INFORMATION
  Report Type: Spontaneous
  Country: US (occurrence: US)
  Receive Date: 20121107
  Receipt Date: 20131231
  Transmission Date: 20140711
  Serious: Yes (Other)
  Sender: FDA-Public Use
  Company Number: US-JNJFOC-20121017004

PATIENT
  Sex: Female

DRUGS (3)
  1. BENADRYL [Suspect]
     Indication: PRURITUS
     Dosage: EVERY ALTERNATE NIGHT AS NEEDED
     Route: 048
  2. DIPHENHYDRAMINE HYDROCHLORIDE [Suspect]
     Indication: PRURITUS
     Dosage: EVERY ALTERNATE NIGHT AS NEEDED
     Route: 048
  3. BENADRYL ITCH RELIEF STICK [Suspect]
     Indication: PRURITUS
     Dosage: DOSAGE: 6^ X 4^, ONCE IN THE MORNING
     Route: 061
     Dates: start: 20121025

REACTIONS (4)
  - Asthma [Unknown]
  - Off label use [Unknown]
  - Drug ineffective [Unknown]
  - Overdose [Unknown]
